FAERS Safety Report 8062103-2 (Version None)
Quarter: 2012Q1

REPORT INFORMATION
  Report Type: 
  Country: None (occurrence: None)
  Receive Date: 20120118
  Receipt Date: 20120109
  Transmission Date: 20120608
  Serious: Yes (Death)
  Sender: FDA-Public Use
  Company Number: JPI-P-008097

PATIENT
  Age: 62 Year
  Sex: Male

DRUGS (10)
  1. TEMAZEPAM (PILL) [Concomitant]
  2. XYREM [Suspect]
     Indication: SLEEP APNOEA SYNDROME
     Dosage: 4.5 GM (2.25 GM, 2 IN 1 D), ORAL
     Route: 048
     Dates: start: 20090623, end: 20090706
  3. METOPROLOL (PILL) [Concomitant]
  4. ALBUTEROL (INHALANT) [Concomitant]
  5. FLUTICASONE (INHALANT) [Concomitant]
  6. GABAPENTIN (PILL) [Concomitant]
  7. DULOXETINE (PILL) [Concomitant]
  8. AZELASTINE (INHALANT) [Concomitant]
  9. FLUTICASONE AND SALMETEROL (INHALANT) [Concomitant]
  10. TIOTROPIUM BROMIDE (INHALANT) [Concomitant]

REACTIONS (2)
  - NEOPLASM MALIGNANT [None]
  - ACUTE MYOCARDIAL INFARCTION [None]
